FAERS Safety Report 7415198-0 (Version None)
Quarter: 2011Q2

REPORT INFORMATION
  Report Type: 
  Country: None (occurrence: None)
  Receive Date: 20110414
  Receipt Date: 20110408
  Transmission Date: 20111010
  Serious: Yes (Life-Threatening, Hospitalization)
  Sender: FDA-Public Use
  Company Number: PHHO2011JP04164

PATIENT
  Sex: Female
  Weight: 66 kg

DRUGS (1)
  1. SPA100A [Suspect]
     Indication: HYPERTENSION
     Dosage: 150/5 MG
     Route: 048
     Dates: start: 20101217, end: 20110207

REACTIONS (10)
  - DECREASED APPETITE [None]
  - GALLBLADDER CANCER [None]
  - REFLUX OESOPHAGITIS [None]
  - HYPOPHAGIA [None]
  - HEPATIC CANCER METASTATIC [None]
  - METASTASES TO LIVER [None]
  - GASTRITIS [None]
  - ABDOMINAL PAIN UPPER [None]
  - LYMPHADENOPATHY [None]
  - ASCITES [None]
